FAERS Safety Report 9678013 (Version 1)
Quarter: 2013Q4

REPORT INFORMATION
  Report Type: Spontaneous
  Country: US (occurrence: None)
  Receive Date: 20131107
  Receipt Date: 20131107
  Transmission Date: 20140711
  Serious: Yes (Disabling)
  Sender: FDA-Public Use
  Company Number: None

PATIENT
  Sex: 0

DRUGS (2)
  1. EDARBI [Suspect]
     Indication: HYPERTENSION
  2. BABY ASPIRIN [Concomitant]

REACTIONS (4)
  - Myalgia [None]
  - Arthralgia [None]
  - Paraesthesia [None]
  - Hypoaesthesia [None]
